FAERS Safety Report 10048357 (Version 2)
Quarter: 2014Q2

REPORT INFORMATION
  Report Type: Report from Study
  Country: DE (occurrence: DE)
  Receive Date: 20140331
  Receipt Date: 20140424
  Transmission Date: 20141212
  Serious: Yes (Death, Hospitalization)
  Sender: FDA-Public Use
  Company Number: DE-GLAXOSMITHKLINE-B0978923A

PATIENT
  Sex: Male

DRUGS (6)
  1. PAZOPANIB [Suspect]
     Indication: METASTATIC RENAL CELL CARCINOMA
     Dosage: 800MG PER DAY
     Dates: start: 20140306, end: 20140319
  2. SORAFENIB [Suspect]
     Indication: METASTATIC RENAL CELL CARCINOMA
     Dosage: 800MG PER DAY
     Dates: start: 20131127, end: 20140305
  3. PRAMIPEXOLE [Concomitant]
     Dates: start: 201309, end: 2014
  4. CLOPIDOGREL [Concomitant]
     Dates: start: 2005, end: 2014
  5. AMLODIPIN [Concomitant]
     Dosage: 5MG PER DAY
     Dates: start: 2007, end: 2013
  6. PALLADON [Concomitant]
     Dosage: 4MG PER DAY
     Dates: start: 20131114, end: 20131204

REACTIONS (1)
  - Pneumonia [Fatal]
